FAERS Safety Report 19241177 (Version 15)
Quarter: 2022Q2

REPORT INFORMATION
  Report Type: Report from Study
  Country: KR (occurrence: None)
  Receive Date: 20210510
  Receipt Date: 20220619
  Transmission Date: 20220721
  Serious: Yes (Hospitalization)
  Sender: FDA-Public Use
  Company Number: KR-ROCHE-2822019

PATIENT
  Age: 67 Year
  Sex: Male

DRUGS (40)
  1. TIRAGOLUMAB [Suspect]
     Active Substance: TIRAGOLUMAB
     Indication: Oesophageal cancer metastatic
     Dosage: ON 19-APR-2021, RECEIVED MOST RECENT DOSE OF TIRAGOLUMAB PRIOR TO AE
     Route: 042
     Dates: start: 20210420
  2. ATEZOLIZUMAB [Suspect]
     Active Substance: ATEZOLIZUMAB
     Indication: Oesophageal cancer metastatic
     Dosage: ON 19-APR-2021, RECEIVED MOST RECENT DOSE OF ATEZOLIZUMAB PRIOR TO AE
     Route: 041
     Dates: start: 20210420
  3. CISPLATIN [Suspect]
     Active Substance: CISPLATIN
     Indication: Oesophageal cancer metastatic
     Dosage: ON 19-APR-2021, RECEIVED MOST RECENT DOSE OF CISPLATIN PRIOR TO AE
     Route: 042
     Dates: start: 20210420
  4. FLUOROURACIL [Suspect]
     Active Substance: FLUOROURACIL
     Indication: Oesophageal cancer metastatic
     Dosage: ON 19-APR-2021, RECEIVED MOST RECENT DOSE OF 5-FLUOROURACIL PRIOR TO AE
     Route: 042
     Dates: start: 20210420
  5. DOCETAXEL [Concomitant]
     Active Substance: DOCETAXEL
     Indication: Neoplasm malignant
     Dates: start: 20210719
  6. APREPITANT [Concomitant]
     Active Substance: APREPITANT
     Indication: Premedication
     Route: 048
     Dates: start: 20210420, end: 20210422
  7. APREPITANT [Concomitant]
     Active Substance: APREPITANT
     Route: 048
     Dates: start: 20210421
  8. MANNITOL [Concomitant]
     Active Substance: MANNITOL
     Indication: Prophylaxis
     Route: 042
     Dates: start: 20210420, end: 20210420
  9. FUROSEMIDE [Concomitant]
     Active Substance: FUROSEMIDE
     Indication: Premedication
     Route: 042
     Dates: start: 20210420, end: 20210420
  10. PALONOSETRON [Concomitant]
     Active Substance: PALONOSETRON
     Route: 042
     Dates: start: 20210420, end: 20210420
  11. ACETAMINOPHEN [Concomitant]
     Active Substance: ACETAMINOPHEN
     Indication: Headache
     Route: 048
     Dates: start: 20210420, end: 20210421
  12. METOCLOPRAMIDE [Concomitant]
     Active Substance: METOCLOPRAMIDE
     Indication: Nausea
     Route: 048
     Dates: start: 20210421, end: 20210623
  13. AMINO ACIDS\DEXTROSE\ELECTROLYTES NOS\SOYBEAN OIL\VITAMINS [Concomitant]
     Active Substance: AMINO ACIDS\DEXTROSE\ELECTROLYTES NOS\SOYBEAN OIL\VITAMINS
     Indication: Prophylaxis
     Route: 042
     Dates: start: 20210421, end: 20210424
  14. LORAZEPAM [Concomitant]
     Active Substance: LORAZEPAM
     Indication: Nausea
     Route: 048
     Dates: start: 20210423, end: 20210512
  15. ADENOSINE [Concomitant]
     Active Substance: ADENOSINE
     Indication: Tachycardia
     Route: 042
     Dates: start: 20210501, end: 20210509
  16. CHLORHEXIDINE [Concomitant]
     Active Substance: CHLORHEXIDINE
     Indication: Stomatitis
     Route: 065
     Dates: start: 20210430, end: 20210606
  17. ORAMEDY [Concomitant]
     Active Substance: TRIAMCINOLONE ACETONIDE
     Indication: Stomatitis
     Route: 061
     Dates: start: 20210430, end: 20210605
  18. VERAPAMIL [Concomitant]
     Active Substance: VERAPAMIL HYDROCHLORIDE
     Indication: Tachycardia
     Route: 048
     Dates: start: 20210503, end: 20210510
  19. TRESTAN [Concomitant]
     Indication: Decreased appetite
     Dates: start: 20210505, end: 20210513
  20. MAGNESIUM SULFATE [Concomitant]
     Active Substance: MAGNESIUM SULFATE
     Indication: Azotaemia
     Route: 042
     Dates: start: 20210505, end: 20210508
  21. METHYLPREDNISOLONE [Concomitant]
     Active Substance: METHYLPREDNISOLONE
     Indication: Urticaria
     Dates: start: 20210507, end: 20210608
  22. SALICYLIC ACID [Concomitant]
     Active Substance: SALICYLIC ACID
     Indication: Urticaria
     Dates: start: 20210507, end: 20210608
  23. BISOPROLOL [Concomitant]
     Active Substance: BISOPROLOL
     Dates: start: 20210510
  24. FLECAINIDE ACETATE [Concomitant]
     Active Substance: FLECAINIDE ACETATE
     Indication: Tachycardia
     Dates: start: 20210510
  25. SMOFLIPID 20% [Concomitant]
     Indication: Decreased appetite
     Dates: start: 20210510, end: 20210516
  26. PRUCALOPRIDE [Concomitant]
     Active Substance: PRUCALOPRIDE
     Indication: Constipation
     Dates: start: 20210511, end: 20210606
  27. PRUCALOPRIDE [Concomitant]
     Active Substance: PRUCALOPRIDE
     Dates: start: 20210511, end: 20210511
  28. ESOMEPRAZOLE [Concomitant]
     Active Substance: ESOMEPRAZOLE
     Indication: Nausea
     Dates: start: 20210516, end: 20210516
  29. ESOMEPRAZOLE [Concomitant]
     Active Substance: ESOMEPRAZOLE
     Indication: Gastritis prophylaxis
     Dates: start: 20210525
  30. FERROUS SULFATE [Concomitant]
     Active Substance: FERROUS SULFATE
     Dates: start: 20210526
  31. FILGRASTIM [Concomitant]
     Active Substance: FILGRASTIM
  32. LACTICARE HC [Concomitant]
     Dates: start: 20210421
  33. ALMAGEL-F [Concomitant]
     Indication: Nausea
     Dates: start: 20210421
  34. AZELASTINE [Concomitant]
     Active Substance: AZELASTINE
  35. MEGESTROL [Concomitant]
     Active Substance: MEGESTROL
     Dates: start: 20210519, end: 20210608
  36. PANTOPRAZOLE [Concomitant]
     Active Substance: PANTOPRAZOLE
     Dates: start: 20210525
  37. SODIUM BICARBONATE [Concomitant]
     Active Substance: SODIUM BICARBONATE
     Dates: start: 20210517, end: 20210608
  38. NIFEDIPINE [Concomitant]
     Active Substance: NIFEDIPINE
     Dates: start: 20210502, end: 20210502
  39. FUROSEMIDE [Concomitant]
     Active Substance: FUROSEMIDE
     Dates: start: 20210510, end: 20210510
  40. MUPIROCIN [Concomitant]
     Active Substance: MUPIROCIN
     Indication: Urticaria
     Dates: start: 20210511, end: 20210513

REACTIONS (1)
  - Azotaemia [Recovered/Resolved]

NARRATIVE: CASE EVENT DATE: 20210426
